FAERS Safety Report 7673024-9 (Version None)
Quarter: 2011Q3

REPORT INFORMATION
  Report Type: 
  Country: None (occurrence: None)
  Receive Date: 20110809
  Receipt Date: 20110801
  Transmission Date: 20111222
  Serious: Yes (Other)
  Sender: FDA-Public Use
  Company Number: PHHY2011RO70489

PATIENT
  Sex: Female
  Weight: 93 kg

DRUGS (5)
  1. DEXAMETHASONE [Concomitant]
  2. DESLORATADINE [Concomitant]
  3. CARBOPLATIN [Suspect]
     Indication: OVARIAN CANCER
     Dosage: 450 MG, UNK
     Route: 042
     Dates: start: 20110706, end: 20110706
  4. RANITIDINE [Concomitant]
  5. DOCETAXEL [Concomitant]

REACTIONS (4)
  - ANXIETY [None]
  - SNEEZING [None]
  - BRONCHOSPASM [None]
  - LACRIMATION INCREASED [None]
